FAERS Safety Report 9220130 (Version 1)
Quarter: 2013Q2

REPORT INFORMATION
  Report Type: Report from Study
  Country: AU (occurrence: AU)
  Receive Date: 20130409
  Receipt Date: 20130409
  Transmission Date: 20140414
  Serious: Yes (Death)
  Sender: FDA-Public Use
  Company Number: AU-ROCHE-1211519

PATIENT
  Sex: 0

DRUGS (1)
  1. ALTEPLASE [Suspect]
     Indication: ISCHAEMIC STROKE
     Dosage: 0.9 MG/KG IV, 10% OF THIS DOSE GIVEN AS A BOLUS FOLLOWED IMMEDIATELY BY THE REMAINING 90% AS A 1-HOU
     Route: 042

REACTIONS (1)
  - Cardiovascular disorder [Fatal]
